FAERS Safety Report 7599937-4 (Version None)
Quarter: 2011Q3

REPORT INFORMATION
  Report Type: 
  Country: None (occurrence: None)
  Receive Date: 20110711
  Receipt Date: 20110705
  Transmission Date: 20111222
  Serious: Yes (Death, Life-Threatening, Hospitalization, Disabling)
  Sender: FDA-Public Use
  Company Number: US-JNJFOC-20110701757

PATIENT
  Sex: Male
  Weight: 66 kg

DRUGS (5)
  1. ELIGARD [Concomitant]
     Indication: HORMONE THERAPY
     Route: 065
     Dates: start: 20060315
  2. ABIRATERONE ACETATE [Suspect]
     Indication: PROSTATE CANCER METASTATIC
     Route: 048
     Dates: start: 20110503
  3. PREDNISOLONE [Suspect]
     Indication: PROSTATE CANCER METASTATIC
     Route: 048
     Dates: start: 20110503
  4. ABIRATERONE ACETATE [Suspect]
     Route: 048
  5. NILANDRON [Concomitant]
     Indication: HORMONE THERAPY
     Route: 065
     Dates: start: 20080405

REACTIONS (1)
  - CEREBROVASCULAR ACCIDENT [None]
